FAERS Safety Report 19748281 (Version 2)
Quarter: 2021Q3

REPORT INFORMATION
  Report Type: Spontaneous
  Country: PT (occurrence: PT)
  Receive Date: 20210826
  Receipt Date: 20210827
  Transmission Date: 20211014
  Serious: Yes (Other)
  Sender: FDA-Public Use
  Company Number: NVSC2021PT190814

PATIENT
  Age: 54 Year
  Sex: Female

DRUGS (4)
  1. XGEVA [Concomitant]
     Active Substance: DENOSUMAB
     Indication: BONE DISORDER
     Dosage: 120 MG, QMO
     Route: 058
     Dates: start: 20210707, end: 20210805
  2. KISQALI [Suspect]
     Active Substance: RIBOCICLIB
     Indication: BREAST CANCER METASTATIC
     Dosage: 600 MG, Q24H (3 COMPRIMIDOS 200MG 1XDIA)
     Route: 048
     Dates: start: 20190401, end: 20210805
  3. FULVESTRANT. [Concomitant]
     Active Substance: FULVESTRANT
     Indication: BREAST CANCER METASTATIC
     Dosage: 500 MG, QMO
     Route: 030
     Dates: start: 20210707, end: 20210805
  4. PEGFILGRASTIM [Concomitant]
     Active Substance: PEGFILGRASTIM
     Indication: PRODUCT USED FOR UNKNOWN INDICATION
     Dosage: UNK
     Route: 058
     Dates: end: 20210707

REACTIONS (1)
  - Skin depigmentation [Recovering/Resolving]

NARRATIVE: CASE EVENT DATE: 20210707
